FAERS Safety Report 8076099-0 (Version None)
Quarter: 2012Q1

REPORT INFORMATION
  Report Type: 
  Country: None (occurrence: None)
  Receive Date: 20120127
  Receipt Date: 20110830
  Transmission Date: 20120608
  Serious: No
  Sender: FDA-Public Use
  Company Number: US-GLAXOSMITHKLINE-A0942861A

PATIENT
  Age: 17 Year
  Sex: Male

DRUGS (3)
  1. LAMOTRIGINE [Suspect]
     Indication: ANGER
     Dosage: 150MG IN THE MORNING
     Route: 048
     Dates: start: 20110801
  2. BUPROPION HYDROCHLORIDE [Suspect]
     Indication: DEPRESSION
     Dosage: 150MG PER DAY
     Route: 048
     Dates: start: 20110801
  3. SEROQUEL [Concomitant]

REACTIONS (1)
  - DRUG SCREEN POSITIVE [None]
